FAERS Safety Report 5480220-8 (Version None)
Quarter: 2007Q4

REPORT INFORMATION
  Report Type: 
  Country: None (occurrence: None)
  Receive Date: 20071003
  Receipt Date: 20070919
  Transmission Date: 20080405
  Serious: Yes (Death)
  Sender: FDA-Public Use
  Company Number: 013188

PATIENT
  Age: 35 Year
  Sex: Male
  Weight: 108 kg

DRUGS (7)
  1. PRIALT [Suspect]
     Indication: DRUG USE FOR UNKNOWN INDICATION
     Dosage: UG, ONCE/HOUR, INTRATHECAL
     Route: 037
     Dates: end: 20070726
  2. DURAGESIC-100 [Concomitant]
  3. MORPHINE [Concomitant]
  4. DIPYRONE TAB [Concomitant]
  5. CARBAMAZEPINE [Concomitant]
  6. GABAPENTIN [Concomitant]
  7. ALL OTHER THERAPEUTIC PRODUCTS [Concomitant]

REACTIONS (1)
  - RESPIRATORY FAILURE [None]
